FAERS Safety Report 5163529-7 (Version None)
Quarter: 2006Q4

REPORT INFORMATION
  Report Type: 
  Country: None (occurrence: None)
  Receive Date: 20061124
  Receipt Date: 20061114
  Transmission Date: 20070319
  Serious: Yes (Hospitalization, Other)
  Sender: FDA-Public Use
  Company Number: 2006141071

PATIENT
  Sex: Female

DRUGS (3)
  1. ZIPRASIDONE HCL [Suspect]
     Indication: BIPOLAR DISORDER
  2. RISPERDAL [Suspect]
     Indication: BIPOLAR DISORDER
     Dosage: ORAL
     Route: 048
  3. ZYPREXA [Suspect]
     Indication: BIPOLAR DISORDER

REACTIONS (19)
  - ANXIETY [None]
  - ARRHYTHMIA [None]
  - CONFUSIONAL STATE [None]
  - DELIRIUM [None]
  - DISORIENTATION [None]
  - DRUG EXPOSURE DURING PREGNANCY [None]
  - HALLUCINATION, AUDITORY [None]
  - INFECTION [None]
  - INSOMNIA [None]
  - MANIA [None]
  - NEUROLEPTIC MALIGNANT SYNDROME [None]
  - PHARYNGOLARYNGEAL PAIN [None]
  - PNEUMONIA [None]
  - PREGNANCY [None]
  - PULMONARY EMBOLISM [None]
  - RESPIRATORY FAILURE [None]
  - STRESS [None]
  - THROMBOSIS [None]
  - URINARY BLADDER HAEMORRHAGE [None]
